FAERS Safety Report 7281482-7 (Version None)
Quarter: 2011Q1

REPORT INFORMATION
  Report Type: 
  Country: None (occurrence: None)
  Receive Date: 20110208
  Receipt Date: 20110126
  Transmission Date: 20110831
  Serious: Yes (Other)
  Sender: FDA-Public Use
  Company Number: PHHY2011CA01755

PATIENT
  Sex: Male

DRUGS (2)
  1. SANDOSTATIN LAR [Suspect]
     Indication: CARCINOID TUMOUR
     Dosage: 20 MG, EVERY 4 WEEKS
     Route: 030
     Dates: start: 20110104, end: 20110104
  2. NEXIUM [Concomitant]

REACTIONS (3)
  - 5-HYDROXYINDOLACETIC ACID IN URINE INCREASED [None]
  - BLOOD CHROMOGRANIN A INCREASED [None]
  - FLUSHING [None]
